FAERS Safety Report 11102309 (Version 1)
Quarter: 2015Q2

REPORT INFORMATION
  Report Type: Spontaneous
  Country: US (occurrence: None)
  Receive Date: 20150507
  Receipt Date: 20150507
  Transmission Date: 20150821
  Serious: Yes (Other)
  Sender: FDA-Public Use
  Company Number: US-H14001-15-00661

PATIENT
  Sex: Female

DRUGS (6)
  1. HYDROCORTISONE (HYDROCORTISONE) [Concomitant]
     Active Substance: HYDROCORTISONE
  2. PROPYLTHIOURACIL. [Suspect]
     Active Substance: PROPYLTHIOURACIL
     Indication: HYPERTHYROIDISM
     Dosage: 300 MG (100 MG,3 IN 1 D)
  3. METOPROLOL (METOPROLOL) (UNKNOWN) (METOPROLOL) [Suspect]
     Active Substance: METOPROLOL
     Indication: HYPERTHYROIDISM
  4. SSKI (POTASSIUM IODIDE) [Concomitant]
  5. METHIMAZOLE. [Suspect]
     Active Substance: METHIMAZOLE
     Indication: HYPERTHYROIDISM
  6. CHOLESTYRAMINE (COLESTYRAMINE) [Concomitant]

REACTIONS (2)
  - Hepatotoxicity [None]
  - Maternal exposure during pregnancy [None]
